FAERS Safety Report 7050298-9 (Version None)
Quarter: 2010Q4

REPORT INFORMATION
  Report Type: 
  Country: None (occurrence: None)
  Receive Date: 20101013
  Receipt Date: 20101004
  Transmission Date: 20110411
  Serious: Yes (Hospitalization)
  Sender: FDA-Public Use
  Company Number: AXC-2010-000260

PATIENT
  Age: 41 Year
  Sex: Female

DRUGS (1)
  1. MESALAMINE [Suspect]
     Indication: CROHN'S DISEASE

REACTIONS (8)
  - ANGINA PECTORIS [None]
  - BLOOD CREATINE PHOSPHOKINASE INCREASED [None]
  - DRUG HYPERSENSITIVITY [None]
  - ECHOCARDIOGRAM ABNORMAL [None]
  - ELECTROCARDIOGRAM ABNORMAL [None]
  - MYOCARDITIS [None]
  - NUCLEAR MAGNETIC RESONANCE IMAGING THORACIC ABNORMAL [None]
  - TROPONIN I INCREASED [None]
